FAERS Safety Report 4621646-1 (Version None)
Quarter: 2005Q1

REPORT INFORMATION
  Report Type: 
  Country: None (occurrence: None)
  Receive Date: 20050328
  Receipt Date: 20050315
  Transmission Date: 20050727
  Serious: Yes (Disabling)
  Sender: FDA-Public Use
  Company Number: A013465

PATIENT
  Age: 59 Year
  Sex: Male

DRUGS (4)
  1. VIAGRA [Suspect]
     Indication: ERECTILE DYSFUNCTION
     Dosage: 50 MG (AS NECESSARY)
  2. INSULIN [Concomitant]
  3. METFORMIN HCL [Concomitant]
  4. BISOPROLOL (BISOPROLOL) [Concomitant]

REACTIONS (6)
  - OEDEMA [None]
  - OPTIC DISC DISORDER [None]
  - OPTIC DISC HAEMORRHAGE [None]
  - OPTIC ISCHAEMIC NEUROPATHY [None]
  - PUPILLARY REFLEX IMPAIRED [None]
  - VISUAL FIELD DEFECT [None]
